FAERS Safety Report 4843538-5 (Version None)
Quarter: 2005Q4

REPORT INFORMATION
  Report Type: 
  Country: None (occurrence: None)
  Receive Date: 20051125
  Receipt Date: 20051115
  Transmission Date: 20060501
  Serious: Yes (Hospitalization, Disabling, Other)
  Sender: FDA-Public Use
  Company Number: HQWYE244728JUL03

PATIENT
  Age: 52 Year
  Sex: Female
  Weight: 53.12 kg

DRUGS (5)
  1. PREMPRO [Suspect]
     Dosage: 0.625MG/2.5MG DAILY, ORAL
     Route: 048
     Dates: start: 19991023, end: 20010731
  2. PREVACID [Concomitant]
  3. TIMOLOL MALEATE [Concomitant]
  4. SPIRONOLACTONE [Concomitant]
  5. SOMA [Concomitant]

REACTIONS (4)
  - BREAST CANCER METASTATIC [None]
  - OESTROGEN RECEPTOR ASSAY POSITIVE [None]
  - PROGESTERONE RECEPTOR ASSAY POSITIVE [None]
  - SPINAL OSTEOARTHRITIS [None]
